FAERS Safety Report 18886155 (Version 1)
Quarter: 2021Q1

REPORT INFORMATION
  Report Type: Report from Study
  Country: FR (occurrence: FR)
  Receive Date: 20210212
  Receipt Date: 20210212
  Transmission Date: 20210420
  Serious: Yes (Death, Life-Threatening, Hospitalization, Other)
  Sender: FDA-Public Use
  Company Number: FR-PURDUE-USA-2020-0191936

PATIENT
  Age: 75 Year
  Sex: Male

DRUGS (74)
  1. MORPHINE HYDROCHLORIDE [Suspect]
     Active Substance: MORPHINE HYDROCHLORIDE
     Indication: PRODUCT USED FOR UNKNOWN INDICATION
     Dosage: UNK
     Route: 065
  2. DIAMOX                             /00016901/ [Suspect]
     Active Substance: ACETAZOLAMIDE
     Indication: PRODUCT USED FOR UNKNOWN INDICATION
     Dosage: UNK
     Route: 065
  3. SERTRALINE HCL [Suspect]
     Active Substance: SERTRALINE HYDROCHLORIDE
     Dosage: 50 MG, DAILY
     Route: 048
     Dates: start: 20200726, end: 20200810
  4. MIDAZOLAM. [Suspect]
     Active Substance: MIDAZOLAM
     Indication: SEDATION
     Dosage: 5 MG, UNK
     Route: 042
     Dates: start: 20200709, end: 20200713
  5. ISOSORBIDE DINITRATE. [Suspect]
     Active Substance: ISOSORBIDE DINITRATE
     Indication: PRODUCT USED FOR UNKNOWN INDICATION
     Dosage: UNK
     Route: 065
     Dates: start: 20200714, end: 20200720
  6. PHOSPHONEUROS [Suspect]
     Active Substance: CALCIUM PHOSPHATE, DIBASIC, ANHYDROUS\MAGNESIUM GLYCEROPHOSPHATE\PHOSPHORIC ACID\SODIUM PHOSPHATE, DIBASIC
     Indication: PNEUMONIA
     Dosage: 6 G, DAILY
     Route: 042
     Dates: start: 20200708, end: 20200715
  7. CATAPRESSAN                        /00171102/ [Suspect]
     Active Substance: CLONIDINE HYDROCHLORIDE
     Indication: HYPERTENSION
     Dosage: UNK UNK, DAILY
     Route: 065
     Dates: start: 20200717, end: 20200717
  8. LANSOPRAZOLE. [Suspect]
     Active Substance: LANSOPRAZOLE
     Dosage: 3 MG, DAILY
     Route: 048
     Dates: start: 20200210, end: 20200805
  9. CEFOTAXIME [Suspect]
     Active Substance: CEFOTAXIME SODIUM
     Indication: PNEUMONIA
     Dosage: 6 G, DAILY [2 GRAM, TID]
     Route: 042
     Dates: start: 20200708, end: 20200715
  10. IPRATROPIUM [Suspect]
     Active Substance: IPRATROPIUM
     Dosage: 1.5 MG, DAILY [1.5 MILLIGRAM, QD]
     Route: 055
     Dates: start: 20200730, end: 20200803
  11. HYDROXYCARBAMIDE [Concomitant]
     Active Substance: HYDROXYUREA
     Dosage: UNK
  12. LANSOPRAZOLE. [Suspect]
     Active Substance: LANSOPRAZOLE
     Dosage: 3 MG, DAILY
     Route: 048
     Dates: start: 20200710, end: 20200805
  13. METHYLPREDNISOLONE. [Suspect]
     Active Substance: METHYLPREDNISOLONE
     Dosage: 1200 MG, DAILY [QD]
  14. PIPERACILLIN AND TAZOBACTAM [Suspect]
     Active Substance: PIPERACILLIN SODIUM\TAZOBACTAM SODIUM
     Indication: PNEUMONIA
     Dosage: 84 G, UNK
     Route: 042
  15. SERESTA [Suspect]
     Active Substance: OXAZEPAM
     Indication: ANXIOLYTIC THERAPY
     Dosage: 10 MG, DAILY
     Route: 048
     Dates: start: 20200802, end: 20200804
  16. SERESTA [Suspect]
     Active Substance: OXAZEPAM
     Dosage: 20 MG, DAILY
     Route: 048
  17. HYDROXYZINE [Suspect]
     Active Substance: HYDROXYZINE HYDROCHLORIDE
     Indication: PRODUCT USED FOR UNKNOWN INDICATION
     Dosage: UNK
     Route: 065
  18. LOVENOX [Suspect]
     Active Substance: ENOXAPARIN SODIUM
     Indication: PHLEBITIS
     Dosage: 6000 INTERNATIONAL UNIT, QD
     Route: 058
     Dates: start: 20200708, end: 20200807
  19. CEFOTAXIME [Suspect]
     Active Substance: CEFOTAXIME SODIUM
     Dosage: 6 G, UNK
     Route: 042
  20. DUPHALAC [Suspect]
     Active Substance: LACTULOSE
     Dosage: 80 MG, UNK
     Route: 048
  21. KARDEGIC [Concomitant]
     Active Substance: ASPIRIN DL-LYSINE
     Indication: PRODUCT USED FOR UNKNOWN INDICATION
     Dosage: UNK
     Route: 065
  22. NORADRENALINE                      /00127501/ [Suspect]
     Active Substance: NOREPINEPHRINE
     Indication: SEDATION
     Dosage: 8 MG, DAILY
     Route: 042
     Dates: start: 20200709, end: 20200712
  23. REMIFENTANIL                       /01229902/ [Suspect]
     Active Substance: REMIFENTANIL HYDROCHLORIDE
     Indication: SEDATION
     Dosage: UNK
     Route: 042
     Dates: start: 20200720, end: 20200730
  24. ENOXAPARIN SODIUM. [Suspect]
     Active Substance: ENOXAPARIN SODIUM
     Indication: PHLEBITIS
     Dosage: 6000 UNIT, [INTERNATIONAL UNIT]
     Route: 058
  25. AMIODARONE [Concomitant]
     Active Substance: AMIODARONE
     Dosage: UNK
     Dates: start: 20200725, end: 20200727
  26. NOREPINEPHRINE. [Suspect]
     Active Substance: NOREPINEPHRINE
     Indication: SEDATION
     Dosage: 8 MG, UNK
     Route: 042
     Dates: start: 20200709, end: 20200712
  27. NIMBEX [Suspect]
     Active Substance: CISATRACURIUM BESYLATE
     Indication: ENDOTRACHEAL INTUBATION
     Dosage: 20 MG, UNK
     Route: 042
     Dates: start: 20200715, end: 20200715
  28. FUROSEMIDE. [Suspect]
     Active Substance: FUROSEMIDE
     Indication: PRODUCT USED FOR UNKNOWN INDICATION
     Dosage: UNK
     Route: 065
  29. GLUCONATE DE POTASSIUM [Suspect]
     Active Substance: POTASSIUM GLUCONATE
     Indication: PRODUCT USED FOR UNKNOWN INDICATION
     Dosage: UNK
     Route: 065
  30. GLUCONATE DE CALCIUM [Suspect]
     Active Substance: CALCIUM GLUCONATE
     Indication: PRODUCT USED FOR UNKNOWN INDICATION
     Dosage: UNK
     Route: 065
  31. SUFENTANIL [Suspect]
     Active Substance: SUFENTANIL
     Indication: GAIT DISTURBANCE
     Dosage: 33 MCG, UNK
     Route: 042
     Dates: start: 20200709, end: 20200717
  32. OXAZEPAM. [Suspect]
     Active Substance: OXAZEPAM
     Indication: ANXIOLYTIC THERAPY
     Dosage: 20 MG, DAILY
     Route: 048
  33. OXAZEPAM. [Suspect]
     Active Substance: OXAZEPAM
     Dosage: 10 MG, DAILY
     Route: 048
  34. SERTRALINE HCL [Suspect]
     Active Substance: SERTRALINE HYDROCHLORIDE
     Indication: DEPRESSION
     Dosage: 746.35 MG, UNK
     Route: 048
  35. SERTRALINE HCL [Suspect]
     Active Substance: SERTRALINE HYDROCHLORIDE
     Dosage: 50 MG, DAILY
     Route: 048
  36. IMODIUM [Suspect]
     Active Substance: LOPERAMIDE HYDROCHLORIDE
     Dosage: 4 MG, DAILY
     Route: 048
     Dates: start: 20200804, end: 20200804
  37. URAPIDIL [Suspect]
     Active Substance: URAPIDIL
     Indication: HYPERTENSION
     Dosage: 5 MG, DAILY
     Route: 042
     Dates: start: 20200709, end: 20200709
  38. TIORFAN [Suspect]
     Active Substance: RACECADOTRIL
     Indication: PRODUCT USED FOR UNKNOWN INDICATION
     Dosage: UNK
     Route: 065
     Dates: start: 20200727, end: 20200804
  39. LOPERAMIDE [Suspect]
     Active Substance: LOPERAMIDE
     Indication: DIARRHOEA
     Dosage: 4 MG, DAILY
     Route: 048
     Dates: start: 20200804, end: 20200804
  40. NIMBEX [Suspect]
     Active Substance: CISATRACURIUM BESYLATE
     Indication: NEUROMUSCULAR BLOCKING THERAPY
  41. MORPHINE SULFATE (SIMILAR TO NDA 19?516) [Suspect]
     Active Substance: MORPHINE SULFATE
     Indication: PRODUCT USED FOR UNKNOWN INDICATION
     Dosage: UNK
     Route: 065
  42. BENERVA [Suspect]
     Active Substance: THIAMINE HYDROCHLORIDE
     Indication: PRODUCT USED FOR UNKNOWN INDICATION
     Dosage: UNK
     Route: 065
  43. REMIFENTANIL [Suspect]
     Active Substance: REMIFENTANIL
     Indication: SEDATION
     Dosage: UNK
     Route: 042
     Dates: start: 20200720, end: 20200730
  44. TEMESTA                            /00273201/ [Suspect]
     Active Substance: LORAZEPAM
     Indication: ANXIOLYTIC THERAPY
     Dosage: 10 MG, UNK
     Route: 048
     Dates: start: 20200726, end: 20200727
  45. METHYLPREDNISOLONE. [Suspect]
     Active Substance: METHYLPREDNISOLONE
     Dosage: 1200 MG, DAILY [QD]
     Route: 042
     Dates: start: 20200708, end: 20200723
  46. METHYLPREDNISOLONE. [Suspect]
     Active Substance: METHYLPREDNISOLONE
     Dosage: 1800 MG, UNK
     Route: 042
  47. ROVAMYCINE                         /00074401/ [Suspect]
     Active Substance: SPIRAMYCIN
     Indication: PNEUMONIA
     Dosage: 9 MILLION IU, DAILY (9 MEGA?INTERNATIONAL UNIT, QD)
     Route: 042
     Dates: start: 20200708, end: 20200715
  48. IMODIUM [Suspect]
     Active Substance: LOPERAMIDE HYDROCHLORIDE
     Indication: DIARRHOEA
     Dosage: UNK
     Route: 065
  49. IPRATROPIUM [Suspect]
     Active Substance: IPRATROPIUM
     Indication: INHALATION THERAPY
     Dosage: 6 MG, UNK
     Route: 055
  50. DUPHALAC [Suspect]
     Active Substance: LACTULOSE
     Indication: CONSTIPATION
     Dosage: 40 MG, UNK
     Route: 048
     Dates: start: 20200713, end: 20200715
  51. SUFENTANIL CITRATE. [Suspect]
     Active Substance: SUFENTANIL CITRATE
     Indication: GAIT DISTURBANCE
     Dosage: 33 MCG, UNK
     Route: 042
     Dates: start: 20200709, end: 20200717
  52. AMIODARONE [Suspect]
     Active Substance: AMIODARONE
     Indication: ATRIAL FIBRILLATION
     Dosage: 907.2 MG, DAILY
     Route: 042
     Dates: start: 20200725, end: 20200727
  53. MACROGOL [Suspect]
     Active Substance: POLYETHYLENE GLYCOLS
     Indication: CONSTIPATION
     Dosage: UNK UNK, QD
     Route: 048
     Dates: start: 20200713, end: 20200715
  54. ISUPREL [Suspect]
     Active Substance: ISOPROTERENOL HYDROCHLORIDE
     Indication: PRODUCT USED FOR UNKNOWN INDICATION
     Dosage: UNK
     Route: 065
     Dates: start: 20200711, end: 20200713
  55. LANSOPRAZOLE. [Suspect]
     Active Substance: LANSOPRAZOLE
     Indication: GASTROINTESTINAL DISORDER PROPHYLAXIS
     Dosage: 78 MG, UNK
     Route: 048
  56. DIFFU?K [Suspect]
     Active Substance: POTASSIUM CHLORIDE
     Indication: PRODUCT USED FOR UNKNOWN INDICATION
     Dosage: UNK
     Route: 065
  57. PIPERACILLIN AND TAZOBACTAM [Suspect]
     Active Substance: PIPERACILLIN SODIUM\TAZOBACTAM SODIUM
     Dosage: 84 G, UNK
     Route: 042
  58. DIAZEPAM. [Suspect]
     Active Substance: DIAZEPAM
     Indication: PRODUCT USED FOR UNKNOWN INDICATION
     Dosage: UNK
     Route: 065
  59. HUMALOG [Suspect]
     Active Substance: INSULIN LISPRO
     Indication: PRODUCT USED FOR UNKNOWN INDICATION
     Dosage: 1 IU, UNK [INTERNATIONAL UNIT]
     Route: 042
     Dates: start: 20200709, end: 20200730
  60. PROPOFOL. [Suspect]
     Active Substance: PROPOFOL
     Indication: SEDATION
     Dosage: 150 MG, Q1H
     Route: 042
     Dates: start: 20200709, end: 20200720
  61. PARACETAMOL [Suspect]
     Active Substance: ACETAMINOPHEN
     Indication: PYREXIA
     Dosage: 1 G, UNK
     Route: 042
     Dates: start: 20200719, end: 20200730
  62. MORPHINE SULFATE (SIMILAR TO NDA 19?516) [Suspect]
     Active Substance: MORPHINE SULFATE
     Dosage: UNK
     Route: 065
  63. SUFENTANIL [Suspect]
     Active Substance: SUFENTANIL
     Indication: SEDATION
  64. LANSOPRAZOLE. [Suspect]
     Active Substance: LANSOPRAZOLE
     Indication: PROPHYLAXIS
     Dosage: 78 MG, UNK
     Route: 048
     Dates: start: 20200710, end: 20200805
  65. FRUSEMIDE                          /00032601/ [Suspect]
     Active Substance: FUROSEMIDE
     Indication: PRODUCT USED FOR UNKNOWN INDICATION
     Dosage: UNK
     Route: 065
  66. ATORVASTATINE                      /01326101/ [Concomitant]
     Active Substance: ATORVASTATIN
     Indication: PRODUCT USED FOR UNKNOWN INDICATION
     Dosage: UNK
     Route: 065
  67. NIMBEX [Suspect]
     Active Substance: CISATRACURIUM BESYLATE
     Indication: ENDOTRACHEAL INTUBATION
     Dosage: 20 MG, UNK
     Route: 042
     Dates: start: 20200715, end: 20200715
  68. METHYLPREDNISOLONE. [Suspect]
     Active Substance: METHYLPREDNISOLONE
     Indication: ACUTE RESPIRATORY DISTRESS SYNDROME
     Dosage: 1800 MG, UNK
     Route: 042
  69. PIPERACILLIN AND TAZOBACTAM [Suspect]
     Active Substance: PIPERACILLIN SODIUM\TAZOBACTAM SODIUM
     Dosage: 12 G, DAILY
     Route: 042
     Dates: start: 20200723, end: 20200730
  70. PIPERACILLIN AND TAZOBACTAM [Suspect]
     Active Substance: PIPERACILLIN SODIUM\TAZOBACTAM SODIUM
     Dosage: 12 G, UNK
  71. LORAZEPAM. [Suspect]
     Active Substance: LORAZEPAM
     Indication: ANXIOLYTIC THERAPY
     Dosage: 10 MG, DAILY [2.5 MILLIGRAM, QID]
     Route: 048
     Dates: start: 20200726, end: 20200727
  72. LORAZEPAM. [Suspect]
     Active Substance: LORAZEPAM
     Dosage: 10 MG, UNK
     Route: 048
  73. CEFOTAXIME [Suspect]
     Active Substance: CEFOTAXIME SODIUM
     Dosage: 42 G, UNK
     Route: 042
  74. SUFENTANIL CITRATE. [Suspect]
     Active Substance: SUFENTANIL CITRATE
     Indication: SEDATION

REACTIONS (1)
  - Toxic epidermal necrolysis [Fatal]

NARRATIVE: CASE EVENT DATE: 20200809
